FAERS Safety Report 7399576 (Version 4)
Quarter: 2015Q2

REPORT INFORMATION
  Report Type: Spontaneous
  Country: US (occurrence: US)
  Receive Date: 20100526
  Receipt Date: 20150524
  Transmission Date: 20150821
  Serious: No
  Sender: FDA-Public Use
  Company Number: US-JNJFOC-20100504967

PATIENT
  Age: 53 Year
  Sex: Female
  Weight: 45.36 kg

DRUGS (2)
  1. DURAGESIC [Suspect]
     Active Substance: FENTANYL
     Indication: BONE DISORDER
     Route: 062
     Dates: end: 201004
  2. DURAGESIC [Suspect]
     Active Substance: FENTANYL
     Indication: BONE DISORDER
     Dosage: NDC: 50458-092-05
     Route: 062
     Dates: start: 201004

REACTIONS (6)
  - Drug ineffective [Not Recovered/Not Resolved]
  - Wrong technique in drug usage process [Not Recovered/Not Resolved]
  - Product packaging issue [Unknown]
  - Tooth disorder [Not Recovered/Not Resolved]
  - Drug administered at inappropriate site [Not Recovered/Not Resolved]
  - Pain [Not Recovered/Not Resolved]

NARRATIVE: CASE EVENT DATE: 201004
